FAERS Safety Report 4508009-4 (Version None)
Quarter: 2004Q4

REPORT INFORMATION
  Report Type: 
  Country: None (occurrence: None)
  Receive Date: 20041122
  Receipt Date: 20041122
  Transmission Date: 20050328
  Serious: Yes (Disabling)
  Sender: FDA-Public Use
  Company Number: None

PATIENT
  Age: 56 Year
  Sex: Female
  Weight: 136.0791 kg

DRUGS (4)
  1. GENTAMICIN [Suspect]
     Indication: KNEE ARTHROPLASTY
     Dosage: TWICE DAILY INTRAVENOUS
     Route: 042
     Dates: start: 20030515, end: 20030620
  2. GENTAMICIN [Suspect]
     Indication: POSTOPERATIVE INFECTION
     Dosage: TWICE DAILY INTRAVENOUS
     Route: 042
     Dates: start: 20030515, end: 20030620
  3. VANCOMYCIN [Suspect]
     Indication: KNEE ARTHROPLASTY
     Dosage: ONCE DAILY INTRAVENOUS
     Route: 042
     Dates: start: 20030515, end: 20030620
  4. VANCOMYCIN [Suspect]
     Indication: POSTOPERATIVE INFECTION
     Dosage: ONCE DAILY INTRAVENOUS
     Route: 042
     Dates: start: 20030515, end: 20030620

REACTIONS (4)
  - IMPAIRED DRIVING ABILITY [None]
  - IMPAIRED WORK ABILITY [None]
  - RENAL IMPAIRMENT [None]
  - VESTIBULAR DISORDER [None]
